FAERS Safety Report 16126053 (Version 1)
Quarter: 2019Q1

REPORT INFORMATION
  Report Type: Other
  Country: US (occurrence: US)
  Receive Date: 20190328
  Receipt Date: 20190328
  Transmission Date: 20190418
  Serious: Yes (Hospitalization)
  Sender: FDA-Public Use
  Company Number: US-FDC LIMITED-2064811

PATIENT
  Age: 61 Year
  Sex: Male

DRUGS (6)
  1. CIPROFLOXACIN. [Suspect]
     Active Substance: CIPROFLOXACIN
     Indication: PRODUCT USED FOR UNKNOWN INDICATION
     Route: 065
  2. METOCLOPRAMIDE. [Concomitant]
     Active Substance: METOCLOPRAMIDE
     Route: 065
  3. VENLAFAXINE [Interacting]
     Active Substance: VENLAFAXINE HYDROCHLORIDE
     Route: 065
  4. METHADONE [Interacting]
     Active Substance: METHADONE HYDROCHLORIDE
     Route: 065
  5. HYDROMORPHONE [Concomitant]
     Active Substance: HYDROMORPHONE
     Route: 065
  6. OXYCODONE [Concomitant]
     Active Substance: OXYCODONE
     Route: 065

REACTIONS (2)
  - Drug interaction [Recovered/Resolved]
  - Serotonin syndrome [Recovered/Resolved]
